FAERS Safety Report 11923844 (Version 2)
Quarter: 2016Q1

REPORT INFORMATION
  Report Type: Spontaneous
  Country: US (occurrence: US)
  Receive Date: 20160118
  Receipt Date: 20160204
  Transmission Date: 20160526
  Serious: No
  Sender: FDA-Public Use
  Company Number: US-AMGEN-USASP2016004110

PATIENT
  Age: 75 Year
  Sex: Female
  Weight: 76.64 kg

DRUGS (4)
  1. METFORMIN [Concomitant]
     Active Substance: METFORMIN HYDROCHLORIDE
     Dosage: UNK
     Route: 065
  2. ENBREL [Suspect]
     Active Substance: ETANERCEPT
     Dosage: 50 MG, EVERY 10 DAYS
     Route: 058
  3. ENBREL [Suspect]
     Active Substance: ETANERCEPT
     Dosage: 50 MG, Q2WK
     Route: 058
  4. ENBREL [Suspect]
     Active Substance: ETANERCEPT
     Indication: RHEUMATOID ARTHRITIS
     Dosage: 50 MG, QWK
     Route: 058
     Dates: start: 2014

REACTIONS (5)
  - Device issue [Unknown]
  - Musculoskeletal disorder [Recovering/Resolving]
  - Injection site pain [Unknown]
  - Pain in extremity [Recovering/Resolving]
  - Arthralgia [Recovering/Resolving]
